FAERS Safety Report 4666530-2 (Version None)
Quarter: 2005Q2

REPORT INFORMATION
  Report Type: 
  Country: None (occurrence: None)
  Receive Date: 20050518
  Receipt Date: 20050506
  Transmission Date: 20051028
  Serious: Yes (Hospitalization, Other)
  Sender: FDA-Public Use
  Company Number: 2005071771

PATIENT
  Sex: Female
  Weight: 46.2669 kg

DRUGS (16)
  1. NEURONTIN [Suspect]
     Indication: EPILEPSY
     Dosage: 600 MG (300 MG, 2 IN 1 D), ORAL
     Route: 048
     Dates: start: 19960201
  2. DEPAKOTE [Concomitant]
  3. TEGRETOL [Concomitant]
  4. DIAZEPAM [Concomitant]
  5. SYNTHROID [Concomitant]
  6. OSCAL 500-D (CALCIUM, COLECALCIFEROL) [Concomitant]
  7. PANCRELIPASE (PANCRELIPASE) [Concomitant]
  8. PERIOSTAT [Concomitant]
  9. FERROUS SULFATE TAB [Concomitant]
  10. NASONEX [Concomitant]
  11. AZELAIC ACID (AZELAIC ACID) [Concomitant]
  12. ATROVENT [Concomitant]
  13. MOTRIN (IBUPROFEN) [Concomitant]
  14. ISOSURCE (CARBOHYDRATES NOS, FATS NOS, MINERALS NOS, PROTEINS NOS, VIT [Concomitant]
  15. PROMOD (LECITHINUM, WHEY PROTEINS) [Concomitant]
  16. NEUTROGENA T/GEL THERAPEUTIC SHAMPOO (COAL TAR) [Concomitant]

REACTIONS (3)
  - CONDITION AGGRAVATED [None]
  - GRAND MAL CONVULSION [None]
  - WRONG TECHNIQUE IN DRUG USAGE PROCESS [None]
